FAERS Safety Report 5042939-2 (Version None)
Quarter: 2006Q3

REPORT INFORMATION
  Report Type: 
  Country: None (occurrence: None)
  Receive Date: 20060705
  Receipt Date: 20060626
  Transmission Date: 20061208
  Serious: Yes (Other)
  Sender: FDA-Public Use
  Company Number: DE-JNJFOC-20060204307

PATIENT
  Age: 52 Year
  Sex: Male
  Weight: 99 kg

DRUGS (7)
  1. REMICADE [Suspect]
     Route: 042
  2. REMICADE [Suspect]
     Route: 042
  3. REMICADE [Suspect]
     Route: 042
  4. REMICADE [Suspect]
     Indication: PSORIASIS
     Route: 042
  5. GLUCOPHAG [Concomitant]
     Indication: DIABETES MELLITUS
  6. GLIBENCLAMID [Concomitant]
     Indication: DIABETES MELLITUS
  7. BLOPRESS [Concomitant]
     Indication: HYPERTENSION

REACTIONS (3)
  - HEPATIC ENZYME INCREASED [None]
  - HEPATIC STEATOSIS [None]
  - SPLENOMEGALY [None]
